FAERS Safety Report 5049999-3 (Version None)
Quarter: 2006Q2

REPORT INFORMATION
  Report Type: 
  Country: None (occurrence: None)
  Receive Date: 20060601
  Receipt Date: 20060214
  Transmission Date: 20061013
  Serious: No
  Sender: FDA-Public Use
  Company Number: US200602002959

PATIENT
  Age: 50 Year
  Sex: Female

DRUGS (4)
  1. CYMBALTA [Suspect]
     Indication: FIBROMYALGIA
     Dosage: SEE IMAGE
     Route: 048
     Dates: start: 20051001, end: 20051201
  2. CYMBALTA [Suspect]
     Indication: FIBROMYALGIA
     Dosage: SEE IMAGE
     Route: 048
     Dates: start: 20060201
  3. WELLBUTRIN SR [Concomitant]
  4. VALTREX [Concomitant]

REACTIONS (5)
  - CONSTIPATION [None]
  - FEELING ABNORMAL [None]
  - NAUSEA [None]
  - SEXUAL DYSFUNCTION [None]
  - VOMITING [None]
